FAERS Safety Report 8946332 (Version 1)
Quarter: 2012Q4

REPORT INFORMATION
  Report Type: 
  Country: US (occurrence: US)
  Receive Date: 20121204
  Receipt Date: 20121204
  Transmission Date: 20130627
  Serious: No
  Sender: FDA-Public Use
  Company Number: US-AMGEN-USASP2012072405

PATIENT
  Age: 65 Year
  Sex: Female

DRUGS (1)
  1. ENBREL [Suspect]
     Indication: PSORIASIS
     Dosage: 50 mg, qwk
     Dates: start: 20090301

REACTIONS (5)
  - Headache [Recovered/Resolved]
  - Dysgeusia [Recovered/Resolved]
  - Facial pain [Recovered/Resolved]
  - Eye pain [Recovered/Resolved]
  - Nasal congestion [Recovered/Resolved]
